FAERS Safety Report 15360546 (Version 1)
Quarter: 2018Q3

REPORT INFORMATION
  Report Type: Report from Study
  Country: US (occurrence: US)
  Receive Date: 20180907
  Receipt Date: 20180907
  Transmission Date: 20181010
  Serious: No
  Sender: FDA-Public Use
  Company Number: PHEH2018US036426

PATIENT
  Sex: Female

DRUGS (1)
  1. AFINITOR [Suspect]
     Active Substance: EVEROLIMUS
     Indication: CHEMOTHERAPY MULTIPLE AGENTS SYSTEMIC
     Route: 065

REACTIONS (2)
  - Feeling abnormal [Unknown]
  - Bradyphrenia [Unknown]
